FAERS Safety Report 10688713 (Version 2)
Quarter: 2015Q1

REPORT INFORMATION
  Report Type: Spontaneous
  Country: US (occurrence: US)
  Receive Date: 20150102
  Receipt Date: 20150102
  Transmission Date: 20150720
  Serious: Yes (Other)
  Sender: FDA-Public Use
  Company Number: US-GE HEALTHCARE MEDICAL DIAGNOSTICS-OSCN-PR-1412L-0182

PATIENT
  Age: 80 Year
  Sex: Male

DRUGS (11)
  1. OMNISCAN [Suspect]
     Active Substance: GADODIAMIDE
     Dates: start: 200901, end: 200901
  2. DIVALPROEX SODIUM. [Concomitant]
     Active Substance: DIVALPROEX SODIUM
  3. METHOCARBAMOL. [Concomitant]
     Active Substance: METHOCARBAMOL
  4. OMNISCAN [Suspect]
     Active Substance: GADODIAMIDE
     Indication: DIAGNOSTIC PROCEDURE
     Dates: start: 200809, end: 200809
  5. LEVOTHYROXINE SODIUM. [Concomitant]
     Active Substance: LEVOTHYROXINE SODIUM
  6. OMNISCAN [Suspect]
     Active Substance: GADODIAMIDE
     Indication: PRODUCT USED FOR UNKNOWN INDICATION
     Dates: start: 200808, end: 200808
  7. ASPIRIN. [Concomitant]
     Active Substance: ASPIRIN
  8. OMEPRAZOLE. [Concomitant]
     Active Substance: OMEPRAZOLE
  9. OMNISCAN [Suspect]
     Active Substance: GADODIAMIDE
     Dates: start: 201002, end: 201002
  10. OMNISCAN [Suspect]
     Active Substance: GADODIAMIDE
     Dates: start: 201101, end: 201101
  11. NAPHAZOLINE HYDROCHLORIDE AND PHENIRAMINE MALEATE [Concomitant]
     Active Substance: NAPHAZOLINE HYDROCHLORIDE\PHENIRAMINE MALEATE

REACTIONS (1)
  - Skin plaque [Recovered/Resolved]
